FAERS Safety Report 24449492 (Version 1)
Quarter: 2024Q4

REPORT INFORMATION
  Report Type: Spontaneous
  Country: US (occurrence: US)
  Receive Date: 20241017
  Receipt Date: 20241017
  Transmission Date: 20250115
  Serious: No
  Sender: ROCHE
  Company Number: US-ROCHE-10000104399

PATIENT
  Age: 49 Year
  Sex: Female
  Weight: 106.59 kg

DRUGS (2)
  1. VABYSMO [Suspect]
     Active Substance: FARICIMAB-SVOA
     Indication: Diabetic retinopathy
     Route: 031
  2. EYLEA [Concomitant]
     Active Substance: AFLIBERCEPT
     Indication: Diabetic retinopathy
     Route: 031

REACTIONS (6)
  - Food allergy [Not Recovered/Not Resolved]
  - Eye inflammation [Recovered/Resolved]
  - Visual acuity reduced transiently [Recovered/Resolved]
  - Headache [Recovered/Resolved]
  - Off label use [Unknown]
  - Visual impairment [Recovered/Resolved]

NARRATIVE: CASE EVENT DATE: 20240927
